FAERS Safety Report 23777426 (Version 2)
Quarter: 2024Q2

REPORT INFORMATION
  Report Type: Spontaneous
  Country: CZ (occurrence: CZ)
  Receive Date: 20240424
  Receipt Date: 20240506
  Transmission Date: 20240716
  Serious: Yes (Other)
  Sender: FDA-Public Use
  Company Number: CZ-ASTELLAS-2024EU003771

PATIENT
  Age: 49 Year
  Sex: Male

DRUGS (5)
  1. PROGRAF [Suspect]
     Active Substance: TACROLIMUS
     Indication: Heart transplant
     Dosage: 8 MG, UNKNOWN FREQ. ( 8 (5+3X1) MG AT 09:00)
     Route: 048
  2. PROGRAF [Suspect]
     Active Substance: TACROLIMUS
     Dosage: 7.5 MG, UNKNOWN FREQ. (7,5 MG (5 + 2X1 + 0.5) AT 21:00)
     Route: 048
  3. MYCOPHENOLIC ACID [Concomitant]
     Active Substance: MYCOPHENOLIC ACID
     Indication: Heart transplant
     Dosage: UNK UNK, UNKNOWN FREQ.
     Route: 065
  4. PREDNISONE [Concomitant]
     Active Substance: PREDNISONE
     Indication: Heart transplant
     Dosage: UNK UNK, UNKNOWN FREQ.
     Route: 065
  5. ENVARSUS XR [Concomitant]
     Active Substance: TACROLIMUS
     Indication: Heart transplant
     Dosage: 15 MG, UNKNOWN FREQ. (3X4 MG + 3X1 MG) P.O)
     Route: 048

REACTIONS (4)
  - Neurotoxicity [Recovered/Resolved]
  - Tremor [Recovered/Resolved]
  - Hallucination, auditory [Recovered/Resolved]
  - Toxicity to various agents [Recovered/Resolved]
